FAERS Safety Report 15225074 (Version 1)
Quarter: 2018Q3

REPORT INFORMATION
  Report Type: Spontaneous
  Country: AU (occurrence: AU)
  Receive Date: 20180801
  Receipt Date: 20180801
  Transmission Date: 20181010
  Serious: Yes (Hospitalization, Other)
  Sender: FDA-Public Use
  Company Number: AU-LUPIN PHARMACEUTICALS INC.-2018-05278

PATIENT
  Age: 56 Year
  Sex: Female
  Weight: 84 kg

DRUGS (4)
  1. METHOTREXATE. [Suspect]
     Active Substance: METHOTREXATE
     Dosage: 1250 MG, SINGLE (125 DF)
     Route: 048
  2. TRAMADOL HYDROCHLORIDE EXTENDED RELEASE [Suspect]
     Active Substance: TRAMADOL HYDROCHLORIDE
     Indication: PRODUCT USED FOR UNKNOWN INDICATION
     Dosage: 6 DF, SINGLE
     Route: 048
  3. METHOTREXATE. [Suspect]
     Active Substance: METHOTREXATE
     Indication: RHEUMATOID ARTHRITIS
     Dosage: 30 MG, WEEKLY
     Route: 048
  4. ZOPICLONE [Suspect]
     Active Substance: ZOPICLONE
     Indication: PRODUCT USED FOR UNKNOWN INDICATION
     Dosage: 10 DF, SINGLE
     Route: 048

REACTIONS (11)
  - Pneumonia aspiration [Recovering/Resolving]
  - Toxicity to various agents [Recovering/Resolving]
  - Blood bilirubin increased [Recovering/Resolving]
  - Bone marrow failure [Recovering/Resolving]
  - Febrile neutropenia [Recovering/Resolving]
  - Coma scale abnormal [Recovering/Resolving]
  - Anaemia [Recovering/Resolving]
  - Hypoxia [Recovering/Resolving]
  - Gastrointestinal toxicity [Recovering/Resolving]
  - Pyrexia [Recovering/Resolving]
  - Overdose [Recovering/Resolving]
